FAERS Safety Report 7029738-7 (Version None)
Quarter: 2010Q4

REPORT INFORMATION
  Report Type: 
  Country: None (occurrence: None)
  Receive Date: 20101005
  Receipt Date: 20101005
  Transmission Date: 20110411
  Serious: Yes (Other)
  Sender: FDA-Public Use
  Company Number: None

PATIENT
  Age: 33 Year
  Sex: Male
  Weight: 56.6996 kg

DRUGS (1)
  1. SULFAMETHOXAZOLE-T RIMETHOPRIM DS TAB AMNEAL PHARMACEUTICALS [Suspect]
     Indication: INFECTION
     Dosage: TABLET ONCE DAILY PO
     Route: 048
     Dates: start: 20100826, end: 20100912

REACTIONS (11)
  - DIZZINESS [None]
  - LACRIMATION INCREASED [None]
  - OCULAR ICTERUS [None]
  - ONYCHALGIA [None]
  - ONYCHOMADESIS [None]
  - SKIN EXFOLIATION [None]
  - TOOTH DISORDER [None]
  - TREMOR [None]
  - URINE COLOUR ABNORMAL [None]
  - VISION BLURRED [None]
  - YELLOW SKIN [None]
